FAERS Safety Report 18160428 (Version 1)
Quarter: 2020Q3

REPORT INFORMATION
  Report Type: Spontaneous
  Country: GB (occurrence: GB)
  Receive Date: 20200817
  Receipt Date: 20200817
  Transmission Date: 20201103
  Serious: Yes (Hospitalization)
  Sender: FDA-Public Use
  Company Number: GB-BAUSCH-BL-2020-022417

PATIENT
  Age: 48 Year
  Sex: Male

DRUGS (3)
  1. BENDROFLUMETHAZIDE [Suspect]
     Active Substance: BENDROFLUMETHIAZIDE
     Indication: HYPERTENSION
     Route: 065
  2. SODIUM CHLORIDE. [Suspect]
     Active Substance: SODIUM CHLORIDE
     Indication: HYPONATRAEMIA
     Route: 042
  3. DESMOPRESSIN [Suspect]
     Active Substance: DESMOPRESSIN
     Indication: ENURESIS
     Route: 065

REACTIONS (4)
  - Hyponatraemia [Recovered/Resolved]
  - Hypokalaemia [Recovering/Resolving]
  - Osmotic demyelination syndrome [Recovering/Resolving]
  - Quadriparesis [Recovering/Resolving]
